FAERS Safety Report 6476464-9 (Version None)
Quarter: 2009Q4

REPORT INFORMATION
  Report Type: 
  Country: None (occurrence: None)
  Receive Date: 20091202
  Receipt Date: 20091116
  Transmission Date: 20100525
  Serious: Yes (Other)
  Sender: FDA-Public Use
  Company Number: DSA_42090_2009

PATIENT
  Age: 57 Year
  Sex: Female

DRUGS (2)
  1. CARDIZEM CD [Suspect]
     Indication: HYPERTENSION
     Dosage: (DF)
  2. DILTIAZEM HCL [Suspect]
     Indication: HYPERTENSION
     Dosage: (DF)

REACTIONS (4)
  - DERMATITIS PSORIASIFORM [None]
  - DRUG ERUPTION [None]
  - PHOTOSENSITIVITY REACTION [None]
  - SKIN HYPERPIGMENTATION [None]
